FAERS Safety Report 23202148 (Version 1)
Quarter: 2023Q4

REPORT INFORMATION
  Report Type: Spontaneous
  Country: PT (occurrence: PT)
  Receive Date: 20231120
  Receipt Date: 20231120
  Transmission Date: 20240110
  Serious: Yes (Death)
  Sender: FDA-Public Use
  Company Number: PT-ROCHE-3452556

PATIENT
  Age: 52 Year
  Sex: Female
  Weight: 58 kg

DRUGS (50)
  1. TYKERB [Suspect]
     Active Substance: LAPATINIB DITOSYLATE
     Indication: HER2 positive breast cancer
     Dosage: 1000 MG, QD, 1 CP 2X/J (0-1-1)
     Route: 048
     Dates: start: 20190207
  2. TYKERB [Suspect]
     Active Substance: LAPATINIB DITOSYLATE
     Dosage: 1000 MG, QD
     Route: 048
     Dates: start: 20190723
  3. CYTOXAN [Suspect]
     Active Substance: CYCLOPHOSPHAMIDE
     Indication: HER2 positive breast cancer
     Dosage: Q3W
     Route: 042
     Dates: start: 20201013
  4. CYTOXAN [Suspect]
     Active Substance: CYCLOPHOSPHAMIDE
     Dosage: Q3W
     Route: 042
     Dates: start: 20210103
  5. KADCYLA [Suspect]
     Active Substance: ADO-TRASTUZUMAB EMTANSINE
     Indication: HER2 positive breast cancer
     Dosage: 190.8 MG, Q3W
     Route: 042
     Dates: start: 20170614
  6. KADCYLA [Suspect]
     Active Substance: ADO-TRASTUZUMAB EMTANSINE
     Dosage: 190.8 MG, Q3W
     Route: 042
     Dates: start: 20180308
  7. KADCYLA [Suspect]
     Active Substance: ADO-TRASTUZUMAB EMTANSINE
     Dosage: 190.8 MG, Q3W
     Route: 042
     Dates: start: 20180417
  8. TAXOTERE [Suspect]
     Active Substance: DOCETAXEL
     Indication: HER2 positive breast cancer
     Dosage: Q3W
     Route: 042
     Dates: start: 20210104
  9. TAXOTERE [Suspect]
     Active Substance: DOCETAXEL
     Dosage: Q3W
     Route: 042
     Dates: start: 20210629
  10. TREXALL [Suspect]
     Active Substance: METHOTREXATE SODIUM
     Indication: HER2 positive breast cancer
     Dosage: Q3W
     Route: 042
     Dates: start: 20201013
  11. TREXALL [Suspect]
     Active Substance: METHOTREXATE SODIUM
     Dosage: Q3W
     Route: 042
     Dates: start: 20210103
  12. ADRUCIL [Suspect]
     Active Substance: FLUOROURACIL
     Indication: HER2 positive breast cancer
     Dosage: Q3W
     Route: 042
     Dates: start: 20201013
  13. ADRUCIL [Suspect]
     Active Substance: FLUOROURACIL
     Dosage: Q3W
     Route: 042
     Dates: start: 20210103
  14. NAVELBINE [Suspect]
     Active Substance: VINORELBINE TARTRATE
     Indication: HER2 positive breast cancer
     Dosage: QW
     Route: 042
     Dates: start: 20200310
  15. NAVELBINE [Suspect]
     Active Substance: VINORELBINE TARTRATE
     Dosage: QW
     Route: 042
     Dates: start: 20201001
  16. EFUDEX [Suspect]
     Active Substance: FLUOROURACIL
     Indication: HER2 positive breast cancer
     Dosage: Q3W
     Route: 042
     Dates: start: 20201013
  17. EFUDEX [Suspect]
     Active Substance: FLUOROURACIL
     Dosage: Q3W
     Route: 042
     Dates: start: 20210103
  18. TAXOL [Suspect]
     Active Substance: PACLITAXEL
     Indication: HER2 positive breast cancer
     Dosage: QW
     Route: 042
     Dates: start: 20190813
  19. TAXOL [Suspect]
     Active Substance: PACLITAXEL
     Dosage: QW
     Route: 042
     Dates: start: 20200211
  20. PARAPLATIN [Suspect]
     Active Substance: CARBOPLATIN
     Indication: HER2 positive breast cancer
     Dosage: Q3W
     Route: 042
     Dates: start: 20221214
  21. PARAPLATIN [Suspect]
     Active Substance: CARBOPLATIN
     Dosage: Q3W
     Route: 042
     Dates: start: 20221230
  22. FLUOROPLEX [Suspect]
     Active Substance: FLUOROURACIL
     Indication: HER2 positive breast cancer
     Dosage: Q3W
     Route: 042
     Dates: start: 20201013
  23. FLUOROPLEX [Suspect]
     Active Substance: FLUOROURACIL
     Dosage: Q3W
     Route: 042
     Dates: start: 20210103
  24. GEMZAR [Suspect]
     Active Substance: GEMCITABINE HYDROCHLORIDE
     Indication: HER2 positive breast cancer
     Dosage: Q3W
     Route: 065
     Dates: start: 20221214
  25. GEMZAR [Suspect]
     Active Substance: GEMCITABINE HYDROCHLORIDE
     Dosage: Q3W
     Route: 065
     Dates: start: 20221230
  26. HERCEPTIN [Suspect]
     Active Substance: TRASTUZUMAB
     Indication: HER2 positive breast cancer
     Dosage: Q3W
     Route: 058
     Dates: start: 20180529, end: 20190729
  27. HERCEPTIN [Suspect]
     Active Substance: TRASTUZUMAB
     Dosage: Q3W
     Route: 058
     Dates: start: 20201013
  28. HERCEPTIN [Suspect]
     Active Substance: TRASTUZUMAB
     Dosage: Q3W
     Route: 058
     Dates: start: 20201214
  29. PERJETA [Suspect]
     Active Substance: PERTUZUMAB
     Indication: HER2 positive breast cancer
     Dosage: Q3W
     Route: 042
     Dates: start: 20190903
  30. PERJETA [Suspect]
     Active Substance: PERTUZUMAB
     Dosage: Q3W
     Route: 042
     Dates: start: 20200218
  31. NALOXONE [Concomitant]
     Active Substance: NALOXONE
     Indication: Product used for unknown indication
     Dosage: (ONGOING = NOT CHECKED)
     Route: 065
  32. IVABRADINE [Concomitant]
     Active Substance: IVABRADINE
     Indication: Ejection fraction decreased
     Dosage: UNK
     Route: 065
     Dates: start: 20180308
  33. ZOLEDRONIC ACID [Concomitant]
     Active Substance: ZOLEDRONIC ACID
     Indication: Product used for unknown indication
     Dosage: (ONGOING = NOT CHECKED)
     Route: 065
     Dates: start: 20170509
  34. IPRATROPIUM BROMIDE [Concomitant]
     Active Substance: IPRATROPIUM BROMIDE\IPRATROPIUM BROMIDE ANHYDROUS
     Indication: Product used for unknown indication
     Dosage: (ONGOING = NOT CHECKED)
     Route: 065
  35. CALCIUM CARBONATE [Concomitant]
     Active Substance: CALCIUM CARBONATE
     Indication: Product used for unknown indication
     Dosage: (ONGOING = NOT CHECKED)
     Route: 065
  36. LOPERAMIDE [Concomitant]
     Active Substance: LOPERAMIDE
     Indication: Product used for unknown indication
     Dosage: (ONGOING = NOT CHECKED)
     Route: 065
  37. RAMIPRIL [Concomitant]
     Active Substance: RAMIPRIL
     Indication: Ejection fraction decreased
     Dosage: (ONGOING = NOT CHECKED)
     Route: 065
     Dates: start: 20180308
  38. PREGABALIN [Concomitant]
     Active Substance: PREGABALIN
     Indication: Product used for unknown indication
     Dosage: (ONGOING = NOT CHECKED)
     Route: 065
  39. BUDESONIDE [Concomitant]
     Active Substance: BUDESONIDE
     Indication: Product used for unknown indication
     Dosage: (ONGOING = NOT CHECKED
     Route: 065
  40. ACETYLCYSTEINE [Concomitant]
     Active Substance: ACETYLCYSTEINE
     Indication: Product used for unknown indication
     Dosage: (ONGOING = NOT CHECKED)
     Route: 065
  41. CETIRIZINE [Concomitant]
     Active Substance: CETIRIZINE HYDROCHLORIDE
     Indication: Product used for unknown indication
     Dosage: (ONGOING = NOT CHECKED)
     Route: 065
  42. NALOXONE HYDROCHLORIDE\OXYCODONE HYDROCHLORIDE [Concomitant]
     Active Substance: NALOXONE HYDROCHLORIDE\OXYCODONE HYDROCHLORIDE
     Indication: Product used for unknown indication
     Dosage: (ONGOING = NOT CHECKED)
     Route: 065
     Dates: start: 20170529
  43. BACIDERMA [Concomitant]
     Indication: Product used for unknown indication
     Dosage: (ONGOING = NOT CHECKED)
     Route: 065
  44. BISOPROLOL [Concomitant]
     Active Substance: BISOPROLOL\BISOPROLOL FUMARATE
     Indication: Product used for unknown indication
     Dosage: (ONGOING = NOT CHECKED)
     Route: 065
     Dates: start: 20171129
  45. METOCLOPRAMIDE [Concomitant]
     Active Substance: METOCLOPRAMIDE
     Indication: Product used for unknown indication
     Dosage: (ONGOING = NOT CHECKED)
     Route: 065
  46. CHOLECALCIFEROL [Concomitant]
     Active Substance: CHOLECALCIFEROL
     Indication: Product used for unknown indication
     Dosage: (ONGOING = NOT CHECKED)
     Route: 065
  47. ACETAMINOPHEN [Concomitant]
     Active Substance: ACETAMINOPHEN
     Indication: Product used for unknown indication
     Dosage: (ONGOING = NOT CHECKED)
     Route: 065
  48. OXYCODONE [Concomitant]
     Active Substance: OXYCODONE
     Indication: Product used for unknown indication
     Dosage: (ONGOING = NOT CHECKED)
     Route: 065
  49. PYRIDOXINE [Concomitant]
     Active Substance: PYRIDOXINE
     Indication: Product used for unknown indication
     Dosage: (ONGOING = NOT CHECKED)
     Route: 065
  50. FILGRASTIM [Concomitant]
     Active Substance: FILGRASTIM
     Indication: Product used for unknown indication
     Dosage: (ONGOING = NOT CHECKED)
     Route: 065

REACTIONS (3)
  - Pancytopenia [Fatal]
  - Pneumonia [Fatal]
  - Pyrexia [Fatal]

NARRATIVE: CASE EVENT DATE: 20221227
